FAERS Safety Report 4389718-7 (Version None)
Quarter: 2004Q2

REPORT INFORMATION
  Report Type: 
  Country: None (occurrence: None)
  Receive Date: 20040629
  Receipt Date: 20030805
  Transmission Date: 20050107
  Serious: Yes (Other)
  Sender: FDA-Public Use
  Company Number: US-JNJFOC-20030801176

PATIENT
  Age: 27 Year
  Sex: Male

DRUGS (2)
  1. DURAGESIC [Suspect]
     Indication: INTENTIONAL MISUSE
     Dosage: 25 UG/HR, TRANSDERMAL
     Route: 062
  2. PAIN MEDICATION (ANALGESICS) [Concomitant]

REACTIONS (3)
  - DIZZINESS [None]
  - DRUG ABUSER [None]
  - DYSARTHRIA [None]
